FAERS Safety Report 24350053 (Version 1)
Quarter: 2024Q3

REPORT INFORMATION
  Report Type: Report from Study
  Country: ES (occurrence: ES)
  Receive Date: 20240923
  Receipt Date: 20240923
  Transmission Date: 20241017
  Serious: Yes (Hospitalization)
  Sender: ROCHE
  Company Number: ES-ROCHE-10000086311

PATIENT

DRUGS (2)
  1. RITUXIMAB [Suspect]
     Active Substance: RITUXIMAB
     Indication: Demyelination
     Route: 065
  2. OCRELIZUMAB [Suspect]
     Active Substance: OCRELIZUMAB
     Indication: Demyelination
     Route: 065

REACTIONS (3)
  - COVID-19 [Unknown]
  - Organising pneumonia [Unknown]
  - Hypogammaglobulinaemia [Unknown]
